FAERS Safety Report 7473408-8 (Version None)
Quarter: 2011Q2

REPORT INFORMATION
  Report Type: 
  Country: None (occurrence: None)
  Receive Date: 20110511
  Receipt Date: 20110509
  Transmission Date: 20111010
  Serious: Yes (Death)
  Sender: FDA-Public Use
  Company Number: PHHY2011IL38949

PATIENT
  Age: 84 Year
  Sex: Female

DRUGS (2)
  1. SANDOSTATIN LAR [Suspect]
     Indication: ACROMEGALY
     Dosage: 20 MG EVERY 28 DAYS
     Dates: start: 20090323
  2. SANDOSTATIN LAR [Suspect]
     Dosage: 20 MG EVERY 28 DAYS
     Dates: end: 20110316

REACTIONS (1)
  - DEATH [None]
